FAERS Safety Report 5282914-6 (Version None)
Quarter: 2007Q2

REPORT INFORMATION
  Report Type: 
  Country: None (occurrence: None)
  Receive Date: 20070402
  Receipt Date: 20070322
  Transmission Date: 20071010
  Serious: Yes (Death)
  Sender: FDA-Public Use
  Company Number: JP-NOVOPROD-262079

PATIENT
  Age: 19 Year
  Sex: Male

DRUGS (2)
  1. NORDITROPIN [Suspect]
     Indication: GROWTH HORMONE DEFICIENCY
     Route: 058
  2. THYRADIN S [Concomitant]
     Route: 048

REACTIONS (1)
  - NON-HODGKIN'S LYMPHOMA [None]
